FAERS Safety Report 23586618 (Version 1)
Quarter: 2024Q1

REPORT INFORMATION
  Report Type: Spontaneous
  Country: DE (occurrence: DE)
  Receive Date: 20240301
  Receipt Date: 20240301
  Transmission Date: 20240409
  Serious: Yes (Other)
  Sender: FDA-Public Use
  Company Number: DE-BAYER-2024A028986

PATIENT
  Age: 65 Year
  Sex: Female

DRUGS (1)
  1. KERENDIA [Suspect]
     Active Substance: FINERENONE
     Indication: Hypertension
     Dosage: UNK

REACTIONS (3)
  - Cardiac disorder [None]
  - Oedema peripheral [None]
  - Off label use [None]
